FAERS Safety Report 9806511 (Version 1)
Quarter: 2014Q1

REPORT INFORMATION
  Report Type: Spontaneous
  Country: US (occurrence: US)
  Receive Date: 20140109
  Receipt Date: 20140109
  Transmission Date: 20141002
  Serious: Yes (Other)
  Sender: FDA-Public Use
  Company Number: US-PFIZER INC-2014003623

PATIENT
  Age: 56 Year
  Sex: Female

DRUGS (9)
  1. BOSULIF [Suspect]
     Indication: CHRONIC MYELOID LEUKAEMIA
     Dosage: 100 MG, UNK
     Dates: start: 20130717
  2. BACTRIM [Concomitant]
     Dosage: UNK
  3. ICAPS LUTEIN + OMEGA-3 [Concomitant]
     Dosage: UNK
  4. KEFLEX [Concomitant]
     Dosage: UNK
  5. LIDODERM [Concomitant]
     Dosage: UNK
  6. OXYCONTIN [Concomitant]
     Dosage: UNK
  7. PERCOCET [Concomitant]
     Dosage: UNK
  8. PROMETHAZINE HYDROCHLORIDE [Concomitant]
     Dosage: UNK
  9. TRIAMTERENE-HCTZ [Concomitant]
     Dosage: UNK

REACTIONS (1)
  - Arthropathy [Unknown]
